FAERS Safety Report 6567119-0 (Version None)
Quarter: 2010Q1

REPORT INFORMATION
  Report Type: 
  Country: None (occurrence: None)
  Receive Date: 20100202
  Receipt Date: 20100126
  Transmission Date: 20100710
  Serious: Yes (Death, Hospitalization, Other)
  Sender: FDA-Public Use
  Company Number: FI-PFIZER INC-2010005326

PATIENT
  Age: 41 Year
  Sex: Female

DRUGS (2)
  1. LYRICA [Suspect]
  2. METHADONE [Concomitant]

REACTIONS (3)
  - ACCIDENTAL OVERDOSE [None]
  - COMPLETED SUICIDE [None]
  - DRUG ABUSE [None]
